FAERS Safety Report 8688302 (Version 2)
Quarter: 2015Q1

REPORT INFORMATION
  Report Type: Report from Study
  Country: US (occurrence: US)
  Receive Date: 20120727
  Receipt Date: 20150211
  Transmission Date: 20150721
  Serious: Yes (Other)
  Sender: FDA-Public Use
  Company Number: US-ROCHE-1092321

PATIENT
  Sex: Female
  Weight: 102.6 kg

DRUGS (21)
  1. SPIRIVA [Concomitant]
     Active Substance: TIOTROPIUM BROMIDE MONOHYDRATE
     Dosage: 1 PUFF IN AFTERNOON
     Route: 065
  2. ADVAIR HFA [Concomitant]
     Active Substance: FLUTICASONE PROPIONATE\SALMETEROL XINAFOATE
     Dosage: 250-50
     Route: 065
  3. NASONEX [Concomitant]
     Active Substance: MOMETASONE FUROATE
     Route: 065
  4. AVELOX (UNITED STATES) [Concomitant]
     Dosage: FOR 10 DAYS
     Route: 065
  5. PREDNISONE. [Concomitant]
     Active Substance: PREDNISONE
     Dosage: FOR 5 DAYS WITH FOOD
     Route: 065
  6. KETEK PAK [Concomitant]
     Dosage: FOR 5 DAYS
     Route: 048
  7. TUSSIONEX (UNITED STATES) [Concomitant]
     Route: 048
  8. XOLAIR [Suspect]
     Active Substance: OMALIZUMAB
     Indication: ASTHMA
     Dosage: ON  20/FEB/2004, 22/MAR/2004, 04/SEP/2004, 04/OCT/2004, 20/DEC/2004, 17/SEP/2005, 02/NOV/2005, 02/DE
     Route: 058
     Dates: start: 200401
  9. PULMICORT TURBUHALER [Concomitant]
     Active Substance: BUDESONIDE
     Dosage: 2 PUFFS
     Route: 065
  10. XOPENEX [Concomitant]
     Active Substance: LEVALBUTEROL HYDROCHLORIDE
     Dosage: AS NEEDED
     Route: 065
  11. DOXYCYCLINE. [Concomitant]
     Active Substance: DOXYCYCLINE
     Dosage: FOR 10 DAYS
     Route: 065
  12. VOSPIRE ER [Concomitant]
     Active Substance: ALBUTEROL SULFATE
     Route: 065
  13. TOBRADEX [Concomitant]
     Active Substance: DEXAMETHASONE\TOBRAMYCIN
     Dosage: 0.3-0.5 %
     Route: 065
     Dates: start: 20070306, end: 20070416
  14. ALLEGRA [Concomitant]
     Active Substance: FEXOFENADINE HYDROCHLORIDE
     Dosage: ONLY IF ITCH OR SNEEZE
     Route: 065
  15. ASMANEX [Concomitant]
     Active Substance: MOMETASONE FUROATE
     Dosage: 2 PUFFS
     Route: 065
  16. XOLAIR [Suspect]
     Active Substance: OMALIZUMAB
     Dosage: 1.2 CC. ON 01/APR/2005, 24/SEP/2007.
     Route: 058
  17. FORADIL [Concomitant]
     Active Substance: FORMOTEROL FUMARATE
     Dosage: 1 PUFF TWICE A DAY
     Route: 065
  18. NEBS [Concomitant]
     Dosage: AS NEEDED
     Route: 065
  19. ASTELIN [Concomitant]
     Active Substance: AZELASTINE HYDROCHLORIDE
     Route: 065
  20. LEVAQUIN [Concomitant]
     Active Substance: LEVOFLOXACIN
     Route: 065
  21. MAXAIR [Concomitant]
     Active Substance: PIRBUTEROL ACETATE
     Route: 065

REACTIONS (12)
  - Ear discomfort [Unknown]
  - Influenza like illness [Unknown]
  - Nasal turbinate abnormality [Unknown]
  - Eustachian tube dysfunction [Unknown]
  - Asthma [Unknown]
  - Weight decreased [Unknown]
  - Swelling face [Unknown]
  - Sinus congestion [Unknown]
  - Bronchial hyperreactivity [Unknown]
  - Sinusitis [Unknown]
  - Wheezing [Unknown]
  - Ear pain [Unknown]
